FAERS Safety Report 5476236-8 (Version None)
Quarter: 2007Q4

REPORT INFORMATION
  Report Type: 
  Country: None (occurrence: None)
  Receive Date: 20071003
  Receipt Date: 20070921
  Transmission Date: 20080405
  Serious: Yes (Other)
  Sender: FDA-Public Use
  Company Number: BR-PFIZER INC-2007079890

PATIENT
  Sex: Female

DRUGS (4)
  1. NORVASC [Suspect]
     Indication: HYPERTENSION
     Dosage: TEXT:1 TABLET
     Route: 048
     Dates: start: 20060101, end: 20070801
  2. ANASTROZOLE [Suspect]
     Route: 048
  3. CAPTOPRIL [Concomitant]
     Route: 048
  4. INDAPAMIDE [Concomitant]
     Route: 048

REACTIONS (2)
  - BLOOD CHOLESTEROL INCREASED [None]
  - DIABETES MELLITUS [None]
